FAERS Safety Report 16290069 (Version 1)
Quarter: 2019Q2

REPORT INFORMATION
  Report Type: Spontaneous
  Country: US (occurrence: US)
  Receive Date: 20190403
  Receipt Date: 20190403
  Transmission Date: 20190711
  Serious: No
  Sender: FDA-Public Use
  Company Number: None

PATIENT
  Age: 34 Year
  Sex: Female
  Weight: 73.48 kg

DRUGS (2)
  1. BUPRENORPHINE-NALOXONE FILMS [Suspect]
     Active Substance: BUPRENORPHINE HYDROCHLORIDE\NALOXONE HYDROCHLORIDE
     Indication: DRUG USE DISORDER
     Dosage: 1 FILM BID SL TOTAL 2.5 DAILY
     Route: 060
  2. BUPRENORPHINE-NALOXONE FILMS [Suspect]
     Active Substance: BUPRENORPHINE HYDROCHLORIDE\NALOXONE HYDROCHLORIDE
     Dosage: 1/2 FILM DAILY SL
     Route: 060

REACTIONS (3)
  - Vomiting [None]
  - Nausea [None]
  - Treatment failure [None]

NARRATIVE: CASE EVENT DATE: 20180711
